FAERS Safety Report 5573465-X (Version None)
Quarter: 2007Q4

REPORT INFORMATION
  Report Type: 
  Country: None (occurrence: None)
  Receive Date: 20071220
  Receipt Date: 20071220
  Transmission Date: 20080405
  Serious: Yes (Hospitalization)
  Sender: FDA-Public Use
  Company Number: None

PATIENT
  Sex: Female
  Weight: 54.5 kg

DRUGS (3)
  1. XELODA [Suspect]
     Dosage: 1000 MG
  2. IRINOTECAN (CPT-11, CAMPTOSAR) [Suspect]
     Dosage: 197 MG
  3. ELOXATIN [Suspect]
     Dosage: 131 MG

REACTIONS (5)
  - ANOREXIA [None]
  - BLOOD POTASSIUM DECREASED [None]
  - DEHYDRATION [None]
  - FATIGUE [None]
  - GASTRITIS [None]
